FAERS Safety Report 9552980 (Version 1)
Quarter: 2013Q3

REPORT INFORMATION
  Report Type: Spontaneous
  Country: US (occurrence: None)
  Receive Date: 20130910
  Receipt Date: 20130910
  Transmission Date: 20140515
  Serious: Yes (Life-Threatening, Hospitalization, Other)
  Sender: FDA-Public Use
  Company Number: 003-142

PATIENT
  Age: 58 Year
  Sex: Female

DRUGS (1)
  1. CROFAB (BTG INTERNATIONAL, INC) [Suspect]
     Indication: SNAKE BITE
     Dosage: 80 VIALS TOTAL

REACTIONS (12)
  - Normochromic normocytic anaemia [None]
  - Leukopenia [None]
  - Lymphopenia [None]
  - Blood creatinine increased [None]
  - Blood creatine phosphokinase increased [None]
  - Pyrexia [None]
  - Wound secretion [None]
  - Muscle contractions involuntary [None]
  - Nystagmus [None]
  - Mental status changes [None]
  - Hypoxia [None]
  - Respiratory distress [None]
